FAERS Safety Report 21363127 (Version 1)
Quarter: 2022Q3

REPORT INFORMATION
  Report Type: Spontaneous
  Country: US (occurrence: US)
  Receive Date: 20220922
  Receipt Date: 20220922
  Transmission Date: 20221027
  Serious: No
  Sender: FDA-Public Use
  Company Number: US-ORGANON-O2209USA001487

PATIENT

DRUGS (2)
  1. PREGNYL [Suspect]
     Active Substance: CHORIOGONADOTROPIN ALFA
     Dosage: UNK
     Route: 058
  2. STERILE WATER [Suspect]
     Active Substance: WATER
     Dosage: UNK

REACTIONS (2)
  - Product prescribing issue [Unknown]
  - Incorrect route of product administration [Unknown]
